FAERS Safety Report 6616406-6 (Version None)
Quarter: 2010Q1

REPORT INFORMATION
  Report Type: 
  Country: None (occurrence: None)
  Receive Date: 20100305
  Receipt Date: 20100222
  Transmission Date: 20100710
  Serious: Yes (Other)
  Sender: FDA-Public Use
  Company Number: PHEH2008US03155

PATIENT
  Sex: Female

DRUGS (31)
  1. ZOMETA [Suspect]
     Dosage: ONCE MONTHLY
     Dates: start: 20040201, end: 20061101
  2. FASLODEX [Concomitant]
  3. DECADRON [Concomitant]
  4. NEUPOGEN [Concomitant]
  5. KYTRIL [Concomitant]
  6. NEULASTA [Concomitant]
  7. PRILOSEC [Concomitant]
  8. DETROL [Concomitant]
  9. LEXAPRO [Concomitant]
  10. ENALAPRIL MALEATE [Concomitant]
  11. OXYCODONE HCL [Concomitant]
  12. SKELAXIN [Concomitant]
     Dosage: 800 MG, UNK
  13. ABRAXANE [Concomitant]
  14. CARBOPLATIN [Concomitant]
  15. ALEVE [Concomitant]
  16. VITAMINS [Concomitant]
  17. AROMASIN [Concomitant]
  18. FOSAMAX [Concomitant]
  19. AMOXICILLIN [Concomitant]
     Dosage: 500 MG, UNK
  20. MEDROXYPROGESTERONE [Concomitant]
     Dosage: 10 MG, UNK
  21. LEVAQUIN [Concomitant]
     Dosage: 500 MG, UNK
  22. DEXAMETHASONE [Concomitant]
     Dosage: 4 MG, UNK
  23. CEPHALEXIN [Concomitant]
     Dosage: 250 MG, UNK
  24. ROXICET [Concomitant]
  25. TAMOXIFEN CITRATE [Concomitant]
     Dosage: 20 MG, UNK
  26. ARIMIDEX [Concomitant]
     Dosage: 1 MG, UNK
  27. CHLORHEXIDINE GLUCONATE [Concomitant]
  28. PROTONIX [Concomitant]
     Dosage: 40 MG, UNK
  29. CLARITHROMYCIN [Concomitant]
  30. XELODA [Concomitant]
     Dosage: 500 MG, UNK
  31. PERIDEX [Concomitant]

REACTIONS (17)
  - ANAEMIA [None]
  - ANHEDONIA [None]
  - CHOLELITHIASIS [None]
  - DEPRESSED MOOD [None]
  - EMOTIONAL DISTRESS [None]
  - GINGIVAL SWELLING [None]
  - HEPATIC CYST [None]
  - INFECTION [None]
  - INJURY [None]
  - LUMBAR VERTEBRAL FRACTURE [None]
  - METASTASES TO BONE [None]
  - OSTEONECROSIS [None]
  - OSTEOPENIA [None]
  - PAIN [None]
  - SCAR [None]
  - TOOTH LOSS [None]
  - VERTEBROPLASTY [None]
